FAERS Safety Report 24019100 (Version 1)
Quarter: 2024Q2

REPORT INFORMATION
  Report Type: Spontaneous
  Country: US (occurrence: None)
  Receive Date: 20240626
  Receipt Date: 20240626
  Transmission Date: 20240715
  Serious: No
  Sender: FDA-Public Use
  Company Number: None

PATIENT
  Age: 26 Year
  Sex: Female
  Weight: 81.65 kg

DRUGS (2)
  1. OLUMIANT [Suspect]
     Active Substance: BARICITINIB
     Indication: Dermatitis atopic
     Dosage: TAKE 1 TABLET BY MOUTH DAILY WITH MEALS AS DIRECTED.
     Route: 048
     Dates: start: 202403
  2. OLUMIANT [Suspect]
     Active Substance: BARICITINIB
     Indication: Alopecia areata

REACTIONS (2)
  - Illness [None]
  - Therapy interrupted [None]
